FAERS Safety Report 9333866 (Version 1)
Quarter: 2013Q2

REPORT INFORMATION
  Report Type: Spontaneous
  Country: US (occurrence: US)
  Receive Date: 20130606
  Receipt Date: 20130606
  Transmission Date: 20140414
  Serious: No
  Sender: FDA-Public Use
  Company Number: US-AMGEN-USASP2013005962

PATIENT
  Age: 89 Year
  Sex: Male

DRUGS (1)
  1. PROLIA [Suspect]
     Indication: OSTEOPOROSIS
     Dosage: 60 MG, Q6MO
     Dates: start: 20120917

REACTIONS (3)
  - Gait disturbance [Unknown]
  - Memory impairment [Unknown]
  - Myalgia [Unknown]
